FAERS Safety Report 7359908-X (Version None)
Quarter: 2011Q1

REPORT INFORMATION
  Report Type: 
  Country: None (occurrence: None)
  Receive Date: 20110317
  Receipt Date: 20110222
  Transmission Date: 20110831
  Serious: No
  Sender: FDA-Public Use
  Company Number: US-B.I. PHARMACEUTICALS,INC./RIDGEFIELD-2011-BP-06579BP

PATIENT
  Age: 69 Year
  Sex: Male

DRUGS (3)
  1. ATROVENT [Concomitant]
  2. SPIRIVA [Suspect]
     Indication: CHRONIC OBSTRUCTIVE PULMONARY DISEASE
     Dosage: 18 MCG
     Route: 055
     Dates: start: 20110217, end: 20110219
  3. BETAPACE [Concomitant]
     Indication: CARDIAC DISORDER
     Dosage: 160 MG
     Route: 048
     Dates: start: 20010101

REACTIONS (2)
  - HEART RATE DECREASED [None]
  - HEART RATE IRREGULAR [None]
